FAERS Safety Report 15675248 (Version 1)
Quarter: 2018Q4

REPORT INFORMATION
  Report Type: Spontaneous
  Country: US (occurrence: US)
  Receive Date: 20181119
  Receipt Date: 20181119
  Transmission Date: 20190205
  Serious: No
  Sender: FDA-Public Use
  Company Number: None

PATIENT
  Age: 60 Year
  Sex: Female

DRUGS (1)
  1. IBRANCE [Suspect]
     Active Substance: PALBOCICLIB
     Route: 048
     Dates: start: 20181009, end: 20181109

REACTIONS (5)
  - Weight decreased [None]
  - Decreased appetite [None]
  - Lacrimation increased [None]
  - White blood cell count decreased [None]
  - Sleep disorder [None]

NARRATIVE: CASE EVENT DATE: 20181116
